FAERS Safety Report 13621702 (Version 1)
Quarter: 2017Q2

REPORT INFORMATION
  Report Type: Spontaneous
  Country: US (occurrence: US)
  Receive Date: 20170607
  Receipt Date: 20170607
  Transmission Date: 20170830
  Serious: No
  Sender: FDA-Public Use
  Company Number: US-ROCHE-1770662

PATIENT
  Sex: Female
  Weight: 85.81 kg

DRUGS (19)
  1. JUXTAPID [Suspect]
     Active Substance: LOMITAPIDE MESYLATE
     Dosage: UNKNOWN FREQUENCY, /APR/2014 TO ONGOING
     Route: 048
  2. VITAMIN E [Concomitant]
     Active Substance: .ALPHA.-TOCOPHEROL
  3. VITAMIN D [Concomitant]
     Active Substance: CHOLECALCIFEROL
  4. UBIQUINOL [Concomitant]
     Active Substance: UBIQUINOL
  5. JUXTAPID [Suspect]
     Active Substance: LOMITAPIDE MESYLATE
     Indication: TYPE IIA HYPERLIPIDAEMIA
     Route: 048
     Dates: start: 20131027
  6. ALENDRONATE SODIUM. [Concomitant]
     Active Substance: ALENDRONATE SODIUM
  7. KLONOPIN [Suspect]
     Active Substance: CLONAZEPAM
     Indication: NERVOUSNESS
     Dosage: CAN CUT TAB IN HALF
     Route: 065
     Dates: start: 201601
  8. XOPENEX [Concomitant]
     Active Substance: LEVALBUTEROL HYDROCHLORIDE
  9. CITRUCEL [Concomitant]
     Active Substance: METHYLCELLULOSE (4000 MPA.S)
  10. KLONOPIN [Suspect]
     Active Substance: CLONAZEPAM
     Indication: ANXIETY
  11. SIMVASTATIN. [Concomitant]
     Active Substance: SIMVASTATIN
  12. OMEGA 3-6-9 (FISH OIL) [Concomitant]
  13. NIACIN. [Concomitant]
     Active Substance: NIACIN
  14. SYNTHROID [Concomitant]
     Active Substance: LEVOTHYROXINE SODIUM
  15. METOPROLOL. [Concomitant]
     Active Substance: METOPROLOL
  16. COENZYME Q-10 [Concomitant]
  17. BREO ELLIPTA [Concomitant]
     Active Substance: FLUTICASONE FUROATE\VILANTEROL TRIFENATATE
  18. ASPIRIN. [Concomitant]
     Active Substance: ASPIRIN
  19. FENOFIBRATE. [Concomitant]
     Active Substance: FENOFIBRATE

REACTIONS (6)
  - Tooth disorder [Unknown]
  - Oropharyngeal pain [Unknown]
  - Nervousness [Unknown]
  - Feeling abnormal [Unknown]
  - Anxiety [Unknown]
  - Influenza [Unknown]
